FAERS Safety Report 21989683 (Version 1)
Quarter: 2023Q1

REPORT INFORMATION
  Report Type: Report from Study
  Country: AU (occurrence: None)
  Receive Date: 20230214
  Receipt Date: 20230214
  Transmission Date: 20230417
  Serious: Yes (Hospitalization)
  Sender: FDA-Public Use
  Company Number: AU-ROCHE-3269869

PATIENT
  Age: 62 Year
  Weight: 75.4 kg

DRUGS (20)
  1. GLOFITAMAB [Suspect]
     Active Substance: GLOFITAMAB
     Indication: Diffuse large B-cell lymphoma
     Dosage: ON 17/JAN/2023, PATIENT RECEIVED THE MOST RECENT LAST DOSE OF GLOFITAMAB PRIOR SERIOUS ADVERSE EVENT
     Route: 042
     Dates: start: 20221228, end: 20230117
  2. GLOFITAMAB [Suspect]
     Active Substance: GLOFITAMAB
     Route: 042
     Dates: start: 20230103
  3. GLOFITAMAB [Suspect]
     Active Substance: GLOFITAMAB
     Route: 042
     Dates: start: 20230117
  4. RITUXIMAB [Suspect]
     Active Substance: RITUXIMAB
     Indication: Diffuse large B-cell lymphoma
     Dosage: ON 10/JAN/2023, PATIENT RECEIVED THE MOST RECENT LAST DOSE OF RITUXIMAB PRIOR SERIOUS ADVERSE EVENT.
     Route: 041
     Dates: start: 20221129, end: 20230110
  5. RITUXIMAB [Suspect]
     Active Substance: RITUXIMAB
     Route: 041
     Dates: start: 20221220
  6. RITUXIMAB [Suspect]
     Active Substance: RITUXIMAB
     Route: 041
     Dates: start: 20230110
  7. POLATUZUMAB VEDOTIN [Suspect]
     Active Substance: POLATUZUMAB VEDOTIN
     Indication: Diffuse large B-cell lymphoma
     Dosage: ON 10/JAN/2023, PATIENT RECEIVED THE MOST RECENT LAST DOSE OF POLATUZUMAB VEDOTIN PRIOR SERIOUS ADVE
     Route: 042
     Dates: start: 20221220, end: 20230110
  8. POLATUZUMAB VEDOTIN [Suspect]
     Active Substance: POLATUZUMAB VEDOTIN
     Route: 042
     Dates: start: 20230110
  9. CYCLOPHOSPHAMIDE [Suspect]
     Active Substance: CYCLOPHOSPHAMIDE
     Indication: Diffuse large B-cell lymphoma
     Dosage: ON 10/JAN/2023, PATIENT RECEIVED THE MOST RECENT LAST DOSE OF CYCLOPHOSPHAMIDE PRIOR SERIOUS ADVERSE
     Route: 042
     Dates: start: 20221129, end: 20230110
  10. DOXORUBICIN [Suspect]
     Active Substance: DOXORUBICIN
     Indication: Diffuse large B-cell lymphoma
     Dosage: ON 10/JAN/2023, PATIENT RECEIVED THE MOST RECENT LAST DOSE OF DOXORUBICIN PRIOR SERIOUS ADVERSE EVEN
     Route: 042
     Dates: start: 20221129, end: 20230110
  11. PREDNISOLONE [Suspect]
     Active Substance: PREDNISOLONE
     Indication: Diffuse large B-cell lymphoma
     Dosage: ON 10/JAN/2023, PATIENT RECEIVED THE MOST RECENT LAST DOSE OF PREDNISOLONE PRIOR SERIOUS ADVERSE EVE
     Route: 048
     Dates: start: 20221129, end: 20230110
  12. DOCUSATE SODIUM\SENNOSIDES A AND B [Concomitant]
     Active Substance: DOCUSATE SODIUM\SENNOSIDES A AND B
     Indication: Constipation
     Route: 065
     Dates: start: 202212
  13. SODIUM BICARBONATE [Concomitant]
     Active Substance: SODIUM BICARBONATE
     Route: 065
     Dates: start: 20221206
  14. MAXOLON [Concomitant]
     Active Substance: METOCLOPRAMIDE HYDROCHLORIDE
     Indication: Nausea
     Route: 065
     Dates: start: 20221206
  15. LORATADINE [Concomitant]
     Active Substance: LORATADINE
     Indication: Hypersensitivity
     Route: 065
     Dates: start: 20221206
  16. NEXIUM [Concomitant]
     Active Substance: ESOMEPRAZOLE MAGNESIUM
     Indication: Hypersensitivity
     Route: 065
     Dates: start: 20221206
  17. VALACYCLOVIR HYDROCHLORIDE [Concomitant]
     Active Substance: VALACYCLOVIR HYDROCHLORIDE
     Indication: Antiviral treatment
     Route: 048
     Dates: start: 20221220
  18. SULFAMETHOXAZOLE\TRIMETHOPRIM [Concomitant]
     Active Substance: SULFAMETHOXAZOLE\TRIMETHOPRIM
     Indication: Antifungal prophylaxis
     Dosage: 400/80 MG
     Route: 048
     Dates: start: 20221220
  19. NEULASTA [Concomitant]
     Active Substance: PEGFILGRASTIM
     Dosage: DAY 4 OF CHEMO CYCLE
     Route: 058
     Dates: start: 20221224
  20. ALLOPURINOL [Concomitant]
     Active Substance: ALLOPURINOL
     Route: 065
     Dates: start: 20221206

REACTIONS (1)
  - Cytokine release syndrome [Recovered/Resolved]

NARRATIVE: CASE EVENT DATE: 20230119
